FAERS Safety Report 24774589 (Version 1)
Quarter: 2024Q4

REPORT INFORMATION
  Report Type: Spontaneous
  Country: EG (occurrence: EG)
  Receive Date: 20241226
  Receipt Date: 20241226
  Transmission Date: 20250114
  Serious: Yes (Life-Threatening)
  Sender: NOVO NORDISK
  Company Number: EG-NOVOPROD-1337939

PATIENT
  Age: 750 Month
  Sex: Male
  Weight: 68 kg

DRUGS (4)
  1. METFORMIN HYDROCHLORIDE [Concomitant]
     Active Substance: METFORMIN HYDROCHLORIDE
     Indication: Diabetes mellitus
     Dosage: 1 TAB/DAY AND 1 TAB/NIGHT (2 TABS/DAY), FROM 10 - 11 YEARS AGO
     Route: 048
  2. HYDROXOCOBALAMIN [Concomitant]
     Active Substance: HYDROXOCOBALAMIN
     Indication: Supplementation therapy
     Dosage: 1 AMPULE/3 DAYS (STARTED FROM 10 - 11 YEARS AGO)
     Route: 030
  3. ASPIRIN [Concomitant]
     Active Substance: ASPIRIN
     Indication: Anticoagulant therapy
     Dosage: 1 TAB / NOON (STARTED FROM 3 YEARS AGO)
     Route: 048
  4. INSULIN HUMAN [Suspect]
     Active Substance: INSULIN HUMAN
     Indication: Diabetes mellitus
     Dosage: 90 IU, QD(50 U/MORNING AND 40 U/NIGHT)
     Route: 058

REACTIONS (3)
  - Thrombosis [Not Recovered/Not Resolved]
  - Hyperchlorhydria [Not Recovered/Not Resolved]
  - Hypertension [Unknown]

NARRATIVE: CASE EVENT DATE: 20210119
